FAERS Safety Report 19371880 (Version 2)
Quarter: 2022Q4

REPORT INFORMATION
  Report Type: Spontaneous
  Country: JP (occurrence: JP)
  Receive Date: 20210604
  Receipt Date: 20221020
  Transmission Date: 20230112
  Serious: Yes (Disabling, Other)
  Sender: FDA-Public Use
  Company Number: JP-BAYER-2021-149746

PATIENT
  Sex: Male

DRUGS (5)
  1. EYLEA [Suspect]
     Active Substance: AFLIBERCEPT
     Indication: Macular oedema
     Dosage: 2 MG, ONCE, RIGHT EYE, SOLUTION FOR INJECTION
     Route: 031
     Dates: start: 20200818, end: 20200818
  2. EYLEA [Suspect]
     Active Substance: AFLIBERCEPT
     Indication: Retinal vein occlusion
  3. AMLODIPINE [Concomitant]
     Active Substance: AMLODIPINE BESYLATE
     Indication: Hypertension
     Dosage: UNK
     Route: 048
     Dates: start: 2018
  4. RUPAFIN [Concomitant]
     Active Substance: RUPATADINE FUMARATE
     Indication: Rhinitis allergic
     Dosage: DAILY DOSE 10 MG
     Route: 048
  5. MONTELUKAST KN [Concomitant]
     Indication: Rhinitis allergic
     Dosage: DAILY DOSE 10 MG
     Route: 048

REACTIONS (7)
  - Blindness unilateral [Not Recovered/Not Resolved]
  - Angle closure glaucoma [Recovered/Resolved]
  - Flat anterior chamber of eye [Recovered/Resolved]
  - Retinal haemorrhage [Unknown]
  - Retinal vein occlusion [Unknown]
  - Conjunctival haemorrhage [Unknown]
  - Retinal artery occlusion [Not Recovered/Not Resolved]

NARRATIVE: CASE EVENT DATE: 20200819
